FAERS Safety Report 9981125 (Version 1)
Quarter: 2014Q1

REPORT INFORMATION
  Report Type: Spontaneous
  Country: GB (occurrence: None)
  Receive Date: 20140305
  Receipt Date: 20140305
  Transmission Date: 20141002
  Serious: Yes (Other)
  Sender: FDA-Public Use
  Company Number: AUR-APL-2014-02249

PATIENT
  Age: 30 Year
  Sex: Female
  Weight: 89 kg

DRUGS (11)
  1. AMOXICILLIN+CLAVULANIC ACID [Suspect]
     Indication: PRODUCT USED FOR UNKNOWN INDICATION
     Dates: start: 20140203
  2. BENZYDAMINE HYDROCHLORIDE [Concomitant]
  3. CANESTEN [Concomitant]
  4. CHLORPHENAMINE [Concomitant]
  5. DICLOFENAC SODIUM [Concomitant]
  6. GABAPENTIN [Concomitant]
  7. IBUPROFEN [Concomitant]
  8. NAPROXEN [Concomitant]
  9. PHENOXYMETHYLPENICILLIN [Concomitant]
  10. PREDNISOLONE SODIUM PHOSPHATE [Concomitant]
  11. SUMATRIPTAN [Concomitant]

REACTIONS (2)
  - Rash [None]
  - Lip swelling [None]
